FAERS Safety Report 6793416-X (Version None)
Quarter: 2010Q2

REPORT INFORMATION
  Report Type: 
  Country: None (occurrence: None)
  Receive Date: 20100624
  Receipt Date: 20100517
  Transmission Date: 20101027
  Serious: Yes (Other)
  Sender: FDA-Public Use
  Company Number: US-MYLANLABS-2010S1002952

PATIENT
  Age: 55 Year
  Sex: Male

DRUGS (4)
  1. CLOZAPINE [Suspect]
     Route: 048
     Dates: start: 20100121, end: 20100216
  2. GEODON [Concomitant]
     Route: 048
     Dates: start: 20090901
  3. DEPAKOTE [Concomitant]
     Route: 048
     Dates: start: 20090501
  4. MIRAPEX [Concomitant]
     Route: 048
     Dates: start: 20090101

REACTIONS (1)
  - GRANULOCYTOPENIA [None]
